FAERS Safety Report 7429503-2 (Version None)
Quarter: 2011Q2

REPORT INFORMATION
  Report Type: 
  Country: None (occurrence: None)
  Receive Date: 20110418
  Receipt Date: 20110418
  Transmission Date: 20111010
  Serious: Yes (Other)
  Sender: FDA-Public Use
  Company Number: None

PATIENT
  Age: 56 Year
  Sex: Female
  Weight: 57.6068 kg

DRUGS (1)
  1. AVELOX [Suspect]
     Indication: WOUND INFECTION
     Dosage: 1 TAB PER DAY
     Dates: start: 20100803, end: 20100807

REACTIONS (5)
  - NODULE [None]
  - MUSCULOSKELETAL PAIN [None]
  - MOBILITY DECREASED [None]
  - ARTHRALGIA [None]
  - INSOMNIA [None]
